FAERS Safety Report 6839403-4 (Version None)
Quarter: 2010Q2

REPORT INFORMATION
  Report Type: 
  Country: None (occurrence: None)
  Receive Date: 20100629
  Receipt Date: 20100413
  Transmission Date: 20101027
  Serious: No
  Sender: FDA-Public Use
  Company Number: US-WYE-H14594610

PATIENT
  Sex: Female

DRUGS (5)
  1. PRISTIQ [Suspect]
  2. CLONAZEPAM [Concomitant]
  3. LITHIUM CARBONATE [Concomitant]
  4. LAMICTAL [Concomitant]
  5. BUSPIRONE HCL [Concomitant]

REACTIONS (1)
  - NONSPECIFIC REACTION [None]
